FAERS Safety Report 18780166 (Version 2)
Quarter: 2021Q1

REPORT INFORMATION
  Report Type: Report from Study
  Country: None (occurrence: US)
  Receive Date: 20210125
  Receipt Date: 20210326
  Transmission Date: 20210419
  Serious: Yes (Hospitalization)
  Sender: FDA-Public Use
  Company Number: US-ABBVIE-21K-163-3742802-00

PATIENT
  Sex: Female
  Weight: 74.91 kg

DRUGS (1)
  1. HUMIRA [Suspect]
     Active Substance: ADALIMUMAB
     Indication: RHEUMATOID ARTHRITIS
     Route: 058

REACTIONS (7)
  - Feeling abnormal [Recovering/Resolving]
  - Kidney infection [Recovering/Resolving]
  - Nervous system disorder [Recovering/Resolving]
  - Uterine infection [Recovering/Resolving]
  - Sepsis [Recovering/Resolving]
  - Immune system disorder [Recovering/Resolving]
  - Paralysis [Recovering/Resolving]
